FAERS Safety Report 6359402-9 (Version None)
Quarter: 2009Q3

REPORT INFORMATION
  Report Type: 
  Country: None (occurrence: None)
  Receive Date: 20090917
  Receipt Date: 20090909
  Transmission Date: 20100115
  Serious: Yes (Hospitalization, Other)
  Sender: FDA-Public Use
  Company Number: US-AMGEN-QUU363773

PATIENT
  Sex: Female

DRUGS (2)
  1. ENBREL [Suspect]
     Indication: RHEUMATOID ARTHRITIS
     Route: 058
     Dates: start: 20040712
  2. METHOTREXATE [Concomitant]

REACTIONS (9)
  - BRONCHITIS [None]
  - COUGH [None]
  - DIARRHOEA [None]
  - DYSPNOEA [None]
  - MALAISE [None]
  - PYREXIA [None]
  - SLEEP APNOEA SYNDROME [None]
  - THROAT TIGHTNESS [None]
  - VOMITING [None]
